FAERS Safety Report 4922637-3 (Version None)
Quarter: 2006Q1

REPORT INFORMATION
  Report Type: 
  Country: None (occurrence: None)
  Receive Date: 20060223
  Receipt Date: 20060223
  Transmission Date: 20060701
  Serious: Yes (Hospitalization, Other)
  Sender: FDA-Public Use
  Company Number: None

PATIENT
  Age: 44 Year
  Sex: Female
  Weight: 68.0396 kg

DRUGS (3)
  1. GABAPENTIN [Suspect]
     Indication: NEURALGIA
     Dosage: 100 MG, 1 CAP UP TO 3-4 DAY ORAL
     Route: 048
     Dates: start: 20051101, end: 20051201
  2. ZOMIG [Concomitant]
  3. CANADIAN PAIN MED KNOWN AS ^222^ [Concomitant]

REACTIONS (7)
  - DYSPNOEA [None]
  - NEURALGIA [None]
  - RASH GENERALISED [None]
  - RASH PRURITIC [None]
  - SKIN DISCOLOURATION [None]
  - SKIN DISORDER [None]
  - SKIN WARM [None]
